FAERS Safety Report 5241019-0 (Version None)
Quarter: 2007Q1

REPORT INFORMATION
  Report Type: 
  Country: None (occurrence: None)
  Receive Date: 20070219
  Receipt Date: 20070209
  Transmission Date: 20070707
  Serious: Yes (Hospitalization)
  Sender: FDA-Public Use
  Company Number: FR-ABBOTT-06P-056-0327925-00

PATIENT
  Age: 76 Year
  Sex: Female

DRUGS (10)
  1. KALETRA [Suspect]
     Indication: DRUG USE FOR UNKNOWN INDICATION
     Route: 048
     Dates: start: 20060207, end: 20060213
  2. NORVIR [Interacting]
     Indication: DRUG USE FOR UNKNOWN INDICATION
     Route: 048
     Dates: start: 20060207, end: 20060213
  3. SAQUINAVIR [Suspect]
     Indication: DRUG USE FOR UNKNOWN INDICATION
     Route: 048
     Dates: start: 20060207, end: 20060213
  4. NEBIVOLOL HCL [Suspect]
     Indication: DRUG USE FOR UNKNOWN INDICATION
     Route: 048
     Dates: end: 20060212
  5. ENFUVIRTIDE [Suspect]
     Indication: DRUG USE FOR UNKNOWN INDICATION
     Dates: start: 20060207, end: 20060213
  6. AMITRIPTYLINE HCL [Concomitant]
     Indication: DRUG USE FOR UNKNOWN INDICATION
     Route: 048
  7. CLONAZEPAM [Concomitant]
     Indication: DRUG USE FOR UNKNOWN INDICATION
  8. RISPERDAL [Concomitant]
     Indication: DRUG USE FOR UNKNOWN INDICATION
  9. AMLOPIDINE [Concomitant]
     Indication: DRUG USE FOR UNKNOWN INDICATION
  10. URAPIDIL [Concomitant]
     Indication: DRUG USE FOR UNKNOWN INDICATION

REACTIONS (5)
  - BRADYCARDIA [None]
  - DRUG INTERACTION [None]
  - GENERAL PHYSICAL CONDITION ABNORMAL [None]
  - HYPOTENSION [None]
  - RENAL FAILURE ACUTE [None]
